FAERS Safety Report 5900940-8 (Version None)
Quarter: 2008Q3

REPORT INFORMATION
  Report Type: 
  Country: None (occurrence: None)
  Receive Date: 20080929
  Receipt Date: 20080923
  Transmission Date: 20090109
  Serious: Yes (Other)
  Sender: FDA-Public Use
  Company Number: US-ELI_LILLY_AND_COMPANY-US200809005410

PATIENT
  Sex: Female

DRUGS (3)
  1. HUMULIN 70/30 [Suspect]
     Dosage: 38 U, UNK
  2. HUMULIN 70/30 [Suspect]
     Dosage: 30 U, UNK
  3. HUMULIN 70/30 [Suspect]
     Dosage: 10 U, UNK
     Dates: start: 20080923, end: 20080923

REACTIONS (4)
  - BLOOD GLUCOSE INCREASED [None]
  - CARDIAC OPERATION [None]
  - CATARACT [None]
  - NASOPHARYNGITIS [None]
